FAERS Safety Report 8121622-0 (Version None)
Quarter: 2012Q1

REPORT INFORMATION
  Report Type: 
  Country: None (occurrence: None)
  Receive Date: 20120208
  Receipt Date: 20120208
  Transmission Date: 20120608
  Serious: Yes (Other)
  Sender: FDA-Public Use
  Company Number: None

PATIENT
  Age: 66 Year
  Sex: Female
  Weight: 63.502 kg

DRUGS (1)
  1. RECLAST [Suspect]
     Indication: OSTEOPENIA
     Dosage: 5 MG
     Route: 041
     Dates: start: 20120131, end: 20120131

REACTIONS (5)
  - ARTHRALGIA [None]
  - DYSPNOEA [None]
  - MYALGIA [None]
  - CHEST PAIN [None]
  - VISION BLURRED [None]
